FAERS Safety Report 10045986 (Version 1)
Quarter: 2014Q1

REPORT INFORMATION
  Report Type: Spontaneous
  Country: US (occurrence: US)
  Receive Date: 20140330
  Receipt Date: 20140330
  Transmission Date: 20141002
  Serious: No
  Sender: FDA-Public Use
  Company Number: US-009507513-1403USA011157

PATIENT
  Sex: Female

DRUGS (1)
  1. DULERA [Suspect]
     Dosage: INHALER (EA), UNK
     Route: 055

REACTIONS (1)
  - Drug ineffective [Unknown]
